FAERS Safety Report 16813604 (Version 1)
Quarter: 2019Q3

REPORT INFORMATION
  Report Type: Not Available
  Country: None (occurrence: CN)
  Receive Date: 20190917
  Receipt Date: 20190917
  Transmission Date: 20191005
  Serious: Yes (Other)
  Sender: FDA-Public Use
  Company Number: CN-JIANGSU HENGRUI MEDICINE CO., LTD.-2074510

PATIENT
  Age: 29 Year
  Sex: Female
  Weight: 44.3 kg

DRUGS (6)
  1. LETROZOLE TABLETS USP, 2.5?MG [Suspect]
     Active Substance: LETROZOLE
     Indication: INFERTILITY FEMALE
     Route: 048
     Dates: start: 20190727, end: 20190801
  2. RECOMBINANT HUMAN LUTEINIZING HORMONE ALPHA FOR INJECTION [Suspect]
     Active Substance: LUTROPIN ALFA
     Route: 058
     Dates: start: 20190723, end: 20190725
  3. TRIPTORELIN ACETATE INJECTION [Suspect]
     Active Substance: TRIPTORELIN ACETATE
     Route: 058
     Dates: start: 20190723, end: 20190725
  4. RECOMBINANT HUMAN CHORIONIC GONADOTROPIN INJECTION [Suspect]
     Active Substance: CHORIOGONADOTROPIN ALFA
     Route: 058
     Dates: start: 20190726, end: 20190726
  5. RECOMBINANT HUMAN GROWTH HORMONE FOR INJECTION [Suspect]
     Active Substance: SOMATROPIN
     Route: 058
     Dates: start: 20190723, end: 20190725
  6. HIGH PURITY URINARY GONADOTROPIN FOR INJECTION [Suspect]
     Active Substance: UROFOLLITROPIN
     Route: 058
     Dates: start: 20190725, end: 20190725

REACTIONS (2)
  - Hepatic function abnormal [Unknown]
  - Ovarian hyperstimulation syndrome [Unknown]

NARRATIVE: CASE EVENT DATE: 20190730
